FAERS Safety Report 16633948 (Version 1)
Quarter: 2019Q3

REPORT INFORMATION
  Report Type: Spontaneous
  Country: FR (occurrence: FR)
  Receive Date: 20190725
  Receipt Date: 20190725
  Transmission Date: 20191004
  Serious: Yes (Other)
  Sender: FDA-Public Use
  Company Number: FR-TEIKOKU PHARMA USA-TPU2019-00556

PATIENT
  Age: 74 Year
  Sex: Female

DRUGS (10)
  1. LIDOCAINE. [Suspect]
     Active Substance: LIDOCAINE
     Indication: BIOPSY
     Route: 065
     Dates: start: 20190620, end: 20190620
  2. FUROSEMIDE. [Concomitant]
     Active Substance: FUROSEMIDE
  3. DIGOXINE [Concomitant]
     Active Substance: DIGOXIN
  4. CARAFATE [Concomitant]
     Active Substance: SUCRALFATE
  5. KARDEGIC [Concomitant]
     Active Substance: ASPIRIN DL-LYSINE
  6. TARDYFERON [Concomitant]
     Active Substance: FERROUS SULFATE
  7. LANSOPRAZOLE. [Concomitant]
     Active Substance: LANSOPRAZOLE
  8. BISOPROLOL [Concomitant]
     Active Substance: BISOPROLOL
  9. KALINOX [Suspect]
     Active Substance: NITROUS OXIDE\OXYGEN
     Indication: BIOPSY
     Route: 055
     Dates: start: 20190620, end: 20190620
  10. DIFFU K [Concomitant]
     Active Substance: POTASSIUM CHLORIDE

REACTIONS (3)
  - Somnolence [Recovered/Resolved]
  - Sinus bradycardia [Recovered/Resolved]
  - Bradypnoea [Recovered/Resolved]

NARRATIVE: CASE EVENT DATE: 20190620
